FAERS Safety Report 22066995 (Version 1)
Quarter: 2023Q1

REPORT INFORMATION
  Report Type: Spontaneous
  Country: US (occurrence: US)
  Receive Date: 20230306
  Receipt Date: 20230306
  Transmission Date: 20230418
  Serious: No
  Sender: FDA-Public Use
  Company Number: US-PLXPHARMA-2022-PLX-00077

PATIENT

DRUGS (2)
  1. VAZALORE [Suspect]
     Active Substance: ASPIRIN
     Indication: Myalgia
     Dosage: 325 MILLIGRAM
     Route: 048
  2. VAZALORE [Suspect]
     Active Substance: ASPIRIN
     Indication: Migraine

REACTIONS (1)
  - Drug ineffective [Unknown]
